FAERS Safety Report 15315118 (Version 1)
Quarter: 2018Q3

REPORT INFORMATION
  Report Type: Spontaneous
  Country: US (occurrence: US)
  Receive Date: 20180815
  Receipt Date: 20180815
  Transmission Date: 20181010
  Serious: Yes (Hospitalization)
  Sender: FDA-Public Use
  Company Number: None

PATIENT
  Age: 69 Year
  Sex: Female

DRUGS (31)
  1. LEVOTHYROXINE. [Concomitant]
     Active Substance: LEVOTHYROXINE
  2. METOPROLOL TARTRATE. [Concomitant]
     Active Substance: METOPROLOL TARTRATE
  3. PANTOPRAZOLE [Concomitant]
     Active Substance: PANTOPRAZOLE
  4. VITAMIN B [Concomitant]
     Active Substance: VITAMIN B
  5. BUPROPION. [Concomitant]
     Active Substance: BUPROPION
  6. CALCIUM CARB [Concomitant]
     Active Substance: CALCIUM CARBONATE
  7. LASIX [Concomitant]
     Active Substance: FUROSEMIDE
  8. BEVESPI AER [Concomitant]
  9. COLESTIPOL [Concomitant]
     Active Substance: COLESTIPOL
  10. FENOFIBRATE. [Concomitant]
     Active Substance: FENOFIBRATE
  11. IRON [Concomitant]
     Active Substance: IRON
  12. LEVOCETIRIZINE [Concomitant]
     Active Substance: LEVOCETIRIZINE
  13. METFORMIN [Concomitant]
     Active Substance: METFORMIN HYDROCHLORIDE
  14. QUETIPAINE [Concomitant]
  15. SPIRONOLACTONE. [Concomitant]
     Active Substance: SPIRONOLACTONE
  16. LETAIRIS [Concomitant]
     Active Substance: AMBRISENTAN
  17. ADCIRCA [Suspect]
     Active Substance: TADALAFIL
     Indication: PULMONARY ARTERIAL HYPERTENSION
     Route: 048
     Dates: start: 20150806
  18. AMIODARONE [Concomitant]
     Active Substance: AMIODARONE
  19. KLONOPIN [Concomitant]
     Active Substance: CLONAZEPAM
  20. ARMOUR THYROID [Concomitant]
     Active Substance: THYROID, PORCINE
  21. CELEXA [Concomitant]
     Active Substance: CITALOPRAM HYDROBROMIDE
  22. PROAIR HFA [Concomitant]
     Active Substance: ALBUTEROL SULFATE
  23. VITAMIN D [Concomitant]
     Active Substance: CHOLECALCIFEROL
  24. RESPI AER [Concomitant]
  25. BENEFIBER [Concomitant]
     Active Substance: STARCH, WHEAT
  26. CULTURELLE [Concomitant]
     Active Substance: LACTOBACILLUS RHAMNOSUS
  27. DIGOXIN. [Concomitant]
     Active Substance: DIGOXIN
  28. COUMADIN [Concomitant]
     Active Substance: WARFARIN SODIUM
  29. ROPINIROLE. [Concomitant]
     Active Substance: ROPINIROLE
  30. SYMBICORT AER [Concomitant]
  31. ZANTAC [Concomitant]
     Active Substance: RANITIDINE HYDROCHLORIDE

REACTIONS (1)
  - Atrial fibrillation [None]

NARRATIVE: CASE EVENT DATE: 20180813
